FAERS Safety Report 5032078-9 (Version None)
Quarter: 2006Q2

REPORT INFORMATION
  Report Type: 
  Country: None (occurrence: None)
  Receive Date: 20060621
  Receipt Date: 20060424
  Transmission Date: 20061013
  Serious: No
  Sender: FDA-Public Use
  Company Number: US-AMGEN-US177294

PATIENT

DRUGS (1)
  1. ARANESP [Suspect]
     Indication: DRUG USE FOR UNKNOWN INDICATION

REACTIONS (1)
  - RIB DEFORMITY [None]
